FAERS Safety Report 5328114-2 (Version None)
Quarter: 2007Q2

REPORT INFORMATION
  Report Type: 
  Country: None (occurrence: None)
  Receive Date: 20070514
  Receipt Date: 20070502
  Transmission Date: 20071010
  Serious: Yes (Death, Life-Threatening, Hospitalization)
  Sender: FDA-Public Use
  Company Number: US020038

PATIENT
  Age: 38 Year
  Sex: Male

DRUGS (2)
  1. GABITRIL [Suspect]
     Indication: ANXIETY
     Dosage: TID ORAL
     Route: 048
  2. PAXIL [Concomitant]

REACTIONS (8)
  - ABDOMINAL INJURY [None]
  - CLAVICLE FRACTURE [None]
  - CONVULSION [None]
  - EYE INJURY [None]
  - FALL [None]
  - INJURY [None]
  - SUICIDE ATTEMPT [None]
  - UNEVALUABLE EVENT [None]
